FAERS Safety Report 11860090 (Version 1)
Quarter: 2015Q4

REPORT INFORMATION
  Report Type: Spontaneous
  Country: FR (occurrence: FR)
  Receive Date: 20151222
  Receipt Date: 20151222
  Transmission Date: 20160305
  Serious: Yes (Hospitalization)
  Sender: FDA-Public Use
  Company Number: FR-009507513-1512FRA010199

PATIENT
  Age: 69 Year
  Sex: Male

DRUGS (16)
  1. BIONOLYTE [Concomitant]
     Active Substance: UNSPECIFIED INGREDIENT
     Dosage: UNK
  2. UROMITEXAN [Concomitant]
     Active Substance: MESNA
     Dosage: UNK
  3. EMEND [Interacting]
     Active Substance: APREPITANT
     Dosage: 125 MG, CYCLICAL (CYCLE 2)
     Route: 048
     Dates: start: 20151124, end: 20151124
  4. IFOSFAMIDE. [Interacting]
     Active Substance: IFOSFAMIDE
     Indication: METASTASES TO LUNG
     Dosage: 6 G, CYCLICAL (FROM DAY 1 TO DAY 3)
     Route: 041
     Dates: start: 20141102, end: 20151104
  5. SECTRAL [Concomitant]
     Active Substance: ACEBUTOLOL HYDROCHLORIDE
     Dosage: UNK
  6. METHYLPREDNISOLONE. [Concomitant]
     Active Substance: METHYLPREDNISOLONE
     Dosage: UNK
  7. NICARDIPINE HYDROCHLORIDE. [Concomitant]
     Active Substance: NICARDIPINE HYDROCHLORIDE
     Dosage: UNK
  8. DOXORUBICIN [Concomitant]
     Active Substance: DOXORUBICIN
     Dosage: UNK
  9. SODIUM CHLORIDE. [Concomitant]
     Active Substance: SODIUM CHLORIDE
     Dosage: UNK
  10. EMEND [Suspect]
     Active Substance: APREPITANT
     Indication: PROPHYLAXIS OF NAUSEA AND VOMITING
     Dosage: UNK (CYCLE 1)
     Route: 048
  11. TIMOPTOL [Concomitant]
     Active Substance: TIMOLOL
     Dosage: UNK
  12. IFOSFAMIDE. [Interacting]
     Active Substance: IFOSFAMIDE
     Dosage: 6 G, CYCLICAL (CYCLE 2)
     Route: 041
     Dates: start: 20151124, end: 20151124
  13. PERINDOPRIL [Concomitant]
     Active Substance: PERINDOPRIL
     Dosage: UNK
  14. MONOPROST [Concomitant]
     Active Substance: LATANOPROST
     Dosage: UNK
  15. ALLOPURINOL. [Concomitant]
     Active Substance: ALLOPURINOL
     Dosage: UNK
  16. ONDANSETRON [Concomitant]
     Active Substance: ONDANSETRON
     Dosage: UNK

REACTIONS (6)
  - Encephalopathy [Recovered/Resolved]
  - Hallucinations, mixed [Recovered/Resolved]
  - Clonus [Recovered/Resolved]
  - Persecutory delusion [Recovered/Resolved]
  - Confusional state [Recovered/Resolved]
  - Disorientation [Recovered/Resolved]

NARRATIVE: CASE EVENT DATE: 20151124
